FAERS Safety Report 4590064-7 (Version None)
Quarter: 2005Q1

REPORT INFORMATION
  Report Type: 
  Country: None (occurrence: None)
  Receive Date: 20050217
  Receipt Date: 20050207
  Transmission Date: 20050727
  Serious: Yes (Life-Threatening, Hospitalization)
  Sender: FDA-Public Use
  Company Number: 2005026214

PATIENT
  Age: 48 Year
  Sex: Female

DRUGS (3)
  1. ZYRTEC [Suspect]
     Indication: RHINITIS ALLERGIC
     Dosage: (1 IN 1 D), ORAL
     Route: 048
  2. ATENOLOL [Concomitant]
  3. GLIMEPIRIDE [Concomitant]

REACTIONS (5)
  - ELECTROCARDIOGRAM QT PROLONGED [None]
  - HYPOCALCAEMIA [None]
  - HYPOKALAEMIA [None]
  - TORSADE DE POINTES [None]
  - VENTRICULAR FIBRILLATION [None]
